FAERS Safety Report 19407723 (Version 3)
Quarter: 2022Q1

REPORT INFORMATION
  Report Type: Report from Study
  Country: US (occurrence: US)
  Receive Date: 20210612
  Receipt Date: 20220323
  Transmission Date: 20220424
  Serious: Yes (Other)
  Sender: FDA-Public Use
  Company Number: US-NOVARTISTESTPH-NVSC2021US127648

PATIENT
  Age: 50 Year
  Sex: Male

DRUGS (3)
  1. MAYZENT [Suspect]
     Active Substance: SIPONIMOD
     Indication: Multiple sclerosis
     Dosage: UNK
     Route: 048
  2. MAYZENT [Suspect]
     Active Substance: SIPONIMOD
     Dosage: 2 MG, QD
     Route: 048
     Dates: start: 202009
  3. MAYZENT [Suspect]
     Active Substance: SIPONIMOD
     Dosage: 1 DOSAGE FORM, QD
     Route: 065

REACTIONS (4)
  - Seizure [Recovered/Resolved]
  - Gait disturbance [Not Recovered/Not Resolved]
  - Mobility decreased [Unknown]
  - Treatment failure [Unknown]

NARRATIVE: CASE EVENT DATE: 20211001
